FAERS Safety Report 7969826-1 (Version None)
Quarter: 2011Q4

REPORT INFORMATION
  Report Type: 
  Country: None (occurrence: None)
  Receive Date: 20111212
  Receipt Date: 20111207
  Transmission Date: 20120403
  Serious: Yes (Congenital Anomaly, Other)
  Sender: FDA-Public Use
  Company Number: US-PFIZER INC-2010092596

PATIENT
  Sex: Male
  Weight: 3.5 kg

DRUGS (1)
  1. ZOLOFT [Suspect]
     Indication: DEPRESSION
     Dosage: UNK
     Route: 064
     Dates: start: 20050101, end: 20061201

REACTIONS (9)
  - NEONATAL RESPIRATORY DISTRESS SYNDROME [None]
  - ATRIAL SEPTAL DEFECT [None]
  - ATELECTASIS NEONATAL [None]
  - FOETAL EXPOSURE DURING PREGNANCY [None]
  - HYPOGLYCAEMIA NEONATAL [None]
  - PATENT DUCTUS ARTERIOSUS [None]
  - SEPSIS NEONATAL [None]
  - ANOMALOUS PULMONARY VENOUS CONNECTION [None]
  - JAUNDICE NEONATAL [None]
